FAERS Safety Report 6313166-3 (Version None)
Quarter: 2009Q3

REPORT INFORMATION
  Report Type: 
  Country: None (occurrence: None)
  Receive Date: 20090818
  Receipt Date: 20090806
  Transmission Date: 20100115
  Serious: Yes (Life-Threatening, Hospitalization)
  Sender: FDA-Public Use
  Company Number: JP-BAYER-200910842BYL

PATIENT
  Age: 76 Year
  Sex: Male
  Weight: 56 kg

DRUGS (7)
  1. NEXAVAR [Suspect]
     Indication: RENAL CELL CARCINOMA STAGE IV
     Dosage: TOTAL DAILY DOSE: 800 MG  UNIT DOSE: 200 MG
     Route: 048
     Dates: start: 20090306, end: 20090313
  2. MINOFIT [Concomitant]
     Dosage: BEFORE ADMINISTRATION
     Route: 048
  3. THYRADIN [Concomitant]
     Dosage: 50-70UG/DAY, BEFORE ADMINISTRATION
     Route: 048
  4. ONEALFA [Concomitant]
     Dosage: BEFORE ADMINISTRATION
     Route: 048
  5. CALCIUM LACTATE [Concomitant]
     Dosage: BEFORE ADMINISTRATION
     Route: 048
  6. ZYLORIC [Concomitant]
     Dosage: BEFORE ADMINISTRATION
     Route: 048
  7. UREPEARL [Concomitant]
     Indication: PROPHYLAXIS
     Route: 061
     Dates: start: 20090302, end: 20090313

REACTIONS (3)
  - HEPATIC FUNCTION ABNORMAL [None]
  - RENAL IMPAIRMENT [None]
  - SHOCK [None]
